FAERS Safety Report 20201754 (Version 1)
Quarter: 2021Q4

REPORT INFORMATION
  Report Type: Report from Study
  Country: CH (occurrence: CH)
  Receive Date: 20211217
  Receipt Date: 20211217
  Transmission Date: 20220303
  Serious: Yes (Life-Threatening)
  Sender: FDA-Public Use
  Company Number: CH-TEVA-2021-CH-1988338

PATIENT
  Age: 44 Year
  Sex: Female

DRUGS (10)
  1. LEVETIRACETAM [Suspect]
     Active Substance: LEVETIRACETAM
     Indication: Status epilepticus
     Dosage: RECEIVED DURING FIRST, SECOND AND THIRD EPISODE.
     Route: 065
  2. PREGABALIN [Suspect]
     Active Substance: PREGABALIN
     Indication: Status epilepticus
     Dosage: RECEIVED DURING FIRST, THIRD AND FOURTH EPISODE.
     Route: 065
  3. PREGABALIN [Suspect]
     Active Substance: PREGABALIN
     Indication: Status epilepticus
     Dosage: RECEIVED AFTER THE SECOND EPISODE WITH METHYLPREDNISOLONE.
     Route: 065
  4. LAMOTRIGINE [Suspect]
     Active Substance: LAMOTRIGINE
     Indication: Status epilepticus
     Dosage: RECEIVED DURING THE FIRST AND SECOND EPISODE.
     Route: 065
  5. CLONAZEPAM [Suspect]
     Active Substance: CLONAZEPAM
     Indication: Status epilepticus
     Dosage: RECEIVED DURING FIRST, SECOND, THIRD AND FOURTH EPISODE.
     Route: 065
  6. LACOSAMIDE [Suspect]
     Active Substance: LACOSAMIDE
     Indication: Status epilepticus
     Dosage: RECEIVED DURING FIRST, SECOND, THIRD AND FOURTH EPISODE.
     Route: 065
  7. CLOBAZAM [Suspect]
     Active Substance: CLOBAZAM
     Indication: Status epilepticus
     Dosage: RECEIVED DURING THE SECOND EPISODE.
     Route: 065
  8. PERAMPANEL [Suspect]
     Active Substance: PERAMPANEL
     Indication: Status epilepticus
     Dosage: STARTED AFTER THE THIRD EPISODE ALONG WITH METHYLPREDNISOLONE AND CONTINUED DURING THE FOURTH EPI...
     Route: 065
  9. METHYLPREDNISOLONE [Concomitant]
     Active Substance: METHYLPREDNISOLONE
     Indication: Status epilepticus
     Dosage: FOR THREE DAYS; AFTER FIRST, SECOND, THIRD AND FOURTH EPISODE.
     Route: 042
  10. METHYLPREDNISOLONE [Concomitant]
     Active Substance: METHYLPREDNISOLONE
     Indication: Status epilepticus
     Dosage: TAPERED ORAL DOSE AFTER COMPLETION OF THE INTRAVENOUS DOSE OF THREE DAYS DURING THE SECOND, THIRD...
     Route: 048

REACTIONS (1)
  - Drug ineffective [Unknown]
